FAERS Safety Report 7621002-8 (Version None)
Quarter: 2011Q3

REPORT INFORMATION
  Report Type: 
  Country: None (occurrence: None)
  Receive Date: 20110719
  Receipt Date: 20110503
  Transmission Date: 20111222
  Serious: No
  Sender: FDA-Public Use
  Company Number: US-KINGPHARMUSA00001-K201100550

PATIENT
  Sex: Male

DRUGS (2)
  1. LEVOXYL [Suspect]
     Dosage: 175 MCG, UNK
     Route: 048
  2. LEVOXYL [Suspect]
     Dosage: UNK
     Route: 048

REACTIONS (6)
  - LETHARGY [None]
  - ALOPECIA [None]
  - ARTHRALGIA [None]
  - DYSPNOEA [None]
  - PSORIASIS [None]
  - IRRITABILITY [None]
